FAERS Safety Report 6501988-5 (Version None)
Quarter: 2009Q4

REPORT INFORMATION
  Report Type: 
  Country: None (occurrence: None)
  Receive Date: 20091216
  Receipt Date: 20091214
  Transmission Date: 20100525
  Serious: Yes (Hospitalization)
  Sender: FDA-Public Use
  Company Number: BR-B.I. PHARMACEUTICALS,INC./RIDGEFIELD-2009-BR-01264BR

PATIENT
  Sex: Male

DRUGS (4)
  1. SECOTEX ADV [Suspect]
     Indication: PROSTATOMEGALY
     Dosage: 0.4 MG
     Route: 048
     Dates: end: 20090101
  2. FINASTERIDA [Concomitant]
     Dosage: NR
  3. ENALAPRIL [Concomitant]
     Dosage: NR
  4. NOVOTROX [Concomitant]
     Indication: PARKINSON'S DISEASE
     Dosage: NR

REACTIONS (5)
  - CONSTIPATION [None]
  - HEADACHE [None]
  - PROSTATIC HAEMORRHAGE [None]
  - TINNITUS [None]
  - URINARY TRACT INFLAMMATION [None]
